FAERS Safety Report 25775306 (Version 1)
Quarter: 2025Q3

REPORT INFORMATION
  Report Type: Spontaneous
  Country: US (occurrence: US)
  Receive Date: 20250909
  Receipt Date: 20250909
  Transmission Date: 20251021
  Serious: No
  Sender: ENDO
  Company Number: US-ENDO USA, INC.-2024-050989

PATIENT
  Sex: Female

DRUGS (2)
  1. CLONAZEPAM [Suspect]
     Active Substance: CLONAZEPAM
     Indication: Seizure
     Route: 065
  2. CLONAZEPAM [Suspect]
     Active Substance: CLONAZEPAM
     Indication: Sleep disorder

REACTIONS (3)
  - Feeling abnormal [Not Recovered/Not Resolved]
  - Product dose omission issue [Not Recovered/Not Resolved]
  - Product availability issue [Not Recovered/Not Resolved]

NARRATIVE: CASE EVENT DATE: 20240101
